FAERS Safety Report 7211318-1 (Version None)
Quarter: 2011Q1

REPORT INFORMATION
  Report Type: 
  Country: None (occurrence: None)
  Receive Date: 20110105
  Receipt Date: 20101216
  Transmission Date: 20110831
  Serious: No
  Sender: FDA-Public Use
  Company Number: US-B.I. PHARMACEUTICALS,INC./RIDGEFIELD-2010-BP-14715BP

PATIENT
  Sex: Female

DRUGS (9)
  1. DIOVAN [Concomitant]
     Indication: HYPERTENSION
     Dosage: 160 MG
     Dates: start: 20070101
  2. PRADAXA [Suspect]
     Indication: ATRIAL FIBRILLATION
     Dosage: 300 MG
     Route: 048
     Dates: start: 20101201
  3. CALCIUM [Concomitant]
     Indication: MINERAL SUPPLEMENTATION
  4. FEMARA [Concomitant]
     Indication: PROPHYLACTIC CHEMOTHERAPY
  5. FUROSEMIDE [Concomitant]
     Indication: HYPERTENSION
  6. IRON [Concomitant]
     Indication: MINERAL SUPPLEMENTATION
  7. CARVEDILOL [Concomitant]
     Indication: HYPERTENSION
  8. VENLOFAINE [Concomitant]
     Indication: ANXIETY
  9. SPIRONOLACTONE [Concomitant]
     Indication: HYPERTENSION

REACTIONS (1)
  - MUSCULOSKELETAL DISCOMFORT [None]
